FAERS Safety Report 5775629-9 (Version None)
Quarter: 2008Q2

REPORT INFORMATION
  Report Type: 
  Country: None (occurrence: None)
  Receive Date: 20080612
  Receipt Date: 20080602
  Transmission Date: 20081010
  Serious: Yes (Hospitalization)
  Sender: FDA-Public Use
  Company Number: B0519678A

PATIENT
  Age: 39 Year
  Sex: Male

DRUGS (7)
  1. ALBUTEROL SULFATE [Suspect]
     Indication: ASTHMA
     Dosage: 5 MG / INHALED
     Route: 055
  2. IPRATROPIUM BROMIDE [Concomitant]
  3. HYDROCORTISONE [Concomitant]
  4. MAGNESIUM SULFATE [Concomitant]
  5. PREDNISOLONE [Concomitant]
  6. AMOXICILLIN TRIHYDRATE [Concomitant]
  7. CORTICOSTEROID [Concomitant]

REACTIONS (11)
  - BLOOD GASES ABNORMAL [None]
  - BRONCHOSPASM [None]
  - DRUG TOXICITY [None]
  - HEART RATE INCREASED [None]
  - HYPERCAPNIA [None]
  - LACTIC ACIDOSIS [None]
  - OVERDOSE [None]
  - PNEUMOTHORAX [None]
  - RESPIRATORY ACIDOSIS [None]
  - SELF-MEDICATION [None]
  - WHEEZING [None]
